FAERS Safety Report 9857486 (Version 1)
Quarter: 2014Q1

REPORT INFORMATION
  Report Type: Report from Study
  Country: NO (occurrence: NO)
  Receive Date: 20140131
  Receipt Date: 20140131
  Transmission Date: 20141002
  Serious: Yes (Hospitalization, Other)
  Sender: FDA-Public Use
  Company Number: PHHO2013NO017036

PATIENT
  Sex: 0

DRUGS (4)
  1. SANDIMMUNE NEORAL [Suspect]
     Indication: HEART TRANSPLANT
     Dosage: UNK
     Dates: start: 200308
  2. NO TREATMENT RECEIVED [Suspect]
     Indication: HEART TRANSPLANT
     Dosage: NO TREATMENT
  3. CELLCEPT [Suspect]
  4. PREDNISOLONE [Concomitant]
     Indication: HEART TRANSPLANT
     Dosage: UNK
     Dates: start: 200308

REACTIONS (2)
  - Coronary artery stenosis [Unknown]
  - Lip and/or oral cavity cancer [Not Recovered/Not Resolved]
